FAERS Safety Report 5005060-5 (Version None)
Quarter: 2006Q2

REPORT INFORMATION
  Report Type: 
  Country: None (occurrence: None)
  Receive Date: 20060516
  Receipt Date: 20060516
  Transmission Date: 20061013
  Serious: No
  Sender: FDA-Public Use
  Company Number: None

PATIENT
  Sex: Female
  Weight: 69.8539 kg

DRUGS (1)
  1. ACYCLOVIR [Suspect]
     Indication: HERPES SIMPLEX
     Dosage: 1 TABLET    3 TIMES A DAY   PO
     Route: 048
     Dates: start: 20060501, end: 20060505

REACTIONS (5)
  - BACK PAIN [None]
  - NAIL DISORDER [None]
  - PARAESTHESIA [None]
  - SENSORY DISTURBANCE [None]
  - SOMNOLENCE [None]
